FAERS Safety Report 22940039 (Version 2)
Quarter: 2024Q1

REPORT INFORMATION
  Report Type: Spontaneous
  Country: US (occurrence: US)
  Receive Date: 20230913
  Receipt Date: 20240301
  Transmission Date: 20240409
  Serious: Yes (Other)
  Sender: FDA-Public Use
  Company Number: US-SANDOZ-SDZ2023US026362

PATIENT
  Age: 43 Year
  Sex: Female

DRUGS (4)
  1. AMITRIPTYLINE [Suspect]
     Active Substance: AMITRIPTYLINE
     Indication: Product used for unknown indication
     Route: 065
  2. GABAPENTIN [Suspect]
     Active Substance: GABAPENTIN
     Indication: Product used for unknown indication
     Dosage: UNK
     Route: 065
  3. KESIMPTA [Suspect]
     Active Substance: OFATUMUMAB
     Indication: Rhabdomyosarcoma
     Dosage: 20 MG, QMO
     Route: 058
     Dates: start: 20220523
  4. OMEPRAZOLE [Suspect]
     Active Substance: OMEPRAZOLE
     Indication: Product used for unknown indication
     Route: 065

REACTIONS (15)
  - Neuropathy peripheral [Unknown]
  - Brain fog [Unknown]
  - Hypoaesthesia [Unknown]
  - Occipital neuralgia [Unknown]
  - Poor quality sleep [Unknown]
  - Tongue blistering [Unknown]
  - Medical diet [Unknown]
  - Memory impairment [Unknown]
  - Tachycardia [Unknown]
  - Malaise [Unknown]
  - Visual impairment [Unknown]
  - Pain [Unknown]
  - Dizziness [Unknown]
  - Intervertebral disc protrusion [Unknown]
  - Contusion [Unknown]

NARRATIVE: CASE EVENT DATE: 20220506
